FAERS Safety Report 25232737 (Version 1)
Quarter: 2025Q2

REPORT INFORMATION
  Report Type: Spontaneous
  Country: US (occurrence: US)
  Receive Date: 20250424
  Receipt Date: 20250424
  Transmission Date: 20250716
  Serious: Yes (Other)
  Sender: JOHNSON AND JOHNSON
  Company Number: US-JNJFOC-20250422627

PATIENT

DRUGS (14)
  1. STELARA [Suspect]
     Active Substance: USTEKINUMAB
     Indication: Psoriasis
     Route: 058
  2. MOTRIN [Concomitant]
     Active Substance: IBUPROFEN
  3. ASPIRIN [Concomitant]
     Active Substance: ASPIRIN
  4. LISINOPRIL [Concomitant]
     Active Substance: LISINOPRIL
  5. METOPROLOL [Concomitant]
     Active Substance: METOPROLOL
  6. VITAMINS [Concomitant]
     Active Substance: VITAMINS
  7. DIPROSONE [Concomitant]
     Active Substance: BETAMETHASONE DIPROPIONATE
     Dates: start: 20241111
  8. VYTORIN [Concomitant]
     Active Substance: EZETIMIBE\SIMVASTATIN
  9. METHOTREXATE DUP [METHOTREXATE SODIUM] [Concomitant]
  10. COSENTYX [Concomitant]
     Active Substance: SECUKINUMAB
     Dates: start: 2019
  11. TYLENOL [Concomitant]
     Active Substance: ACETAMINOPHEN
  12. ELIQUIS [Concomitant]
     Active Substance: APIXABAN
     Dates: start: 20241207, end: 20241230
  13. ECOTRIN [Concomitant]
     Active Substance: ASPIRIN
  14. KEYTRUDA [Concomitant]
     Active Substance: PEMBROLIZUMAB

REACTIONS (4)
  - Lupus-like syndrome [Unknown]
  - Lung neoplasm malignant [Unknown]
  - Psoriasis [Unknown]
  - Treatment failure [Unknown]

NARRATIVE: CASE EVENT DATE: 20120223
